FAERS Safety Report 15706771 (Version 8)
Quarter: 2019Q3

REPORT INFORMATION
  Report Type: Report from Study
  Country: US (occurrence: US)
  Receive Date: 20181210
  Receipt Date: 20190923
  Transmission Date: 20191004
  Serious: Yes (Hospitalization)
  Sender: FDA-Public Use
  Company Number: US-ACTELION-A-NJ2018-183212

PATIENT
  Age: 82 Year
  Sex: Female
  Weight: 48.07 kg

DRUGS (12)
  1. UPTRAVI [Suspect]
     Active Substance: SELEXIPAG
     Indication: PULMONARY ARTERIAL HYPERTENSION
     Dosage: 1600 MCG, BID
     Route: 048
     Dates: start: 20170712
  2. AREDSAN [Concomitant]
     Dosage: 1 TAB, BID
     Dates: start: 20181206
  3. VITAMIN D [Concomitant]
     Active Substance: VITAMIN D NOS
     Dosage: 1000 U, QD
     Dates: start: 20181206
  4. LASIX [Concomitant]
     Active Substance: FUROSEMIDE
  5. SILDENAFIL. [Concomitant]
     Active Substance: SILDENAFIL
     Dosage: 40 MG, BID
     Dates: start: 20181206
  6. OXYGEN. [Concomitant]
     Active Substance: OXYGEN
     Dosage: 3 L, UNK
  7. ASA [Concomitant]
     Active Substance: ASPIRIN
     Dosage: 81 MG, QD
     Dates: start: 20181206
  8. UPTRAVI [Suspect]
     Active Substance: SELEXIPAG
     Dosage: 1600 MCG, QD
     Route: 048
  9. SODIUM BICARBONATE. [Concomitant]
     Active Substance: SODIUM BICARBONATE
     Dosage: 650 MG, TID
     Dates: start: 20181206
  10. PRAVASTATIN. [Concomitant]
     Active Substance: PRAVASTATIN
     Dosage: 80 MG, QD
     Dates: start: 20181206
  11. REVATIO [Concomitant]
     Active Substance: SILDENAFIL CITRATE
  12. CLOPIDOGREL [Concomitant]
     Active Substance: CLOPIDOGREL BISULFATE
     Dosage: 75 MG, QD
     Dates: start: 20181206

REACTIONS (16)
  - Renal disorder [Unknown]
  - Cardiac failure [Unknown]
  - Condition aggravated [Unknown]
  - Lung disorder [Unknown]
  - Cardiac procedure complication [Unknown]
  - Nausea [Unknown]
  - Oxygen consumption increased [Unknown]
  - Peripheral swelling [Unknown]
  - Diagnostic procedure [Unknown]
  - Diarrhoea [Unknown]
  - Cardiac disorder [Unknown]
  - Blood creatinine increased [Recovering/Resolving]
  - Gait disturbance [Unknown]
  - Speech disorder [Unknown]
  - Decreased appetite [Unknown]
  - Musculoskeletal pain [Unknown]

NARRATIVE: CASE EVENT DATE: 201811
